FAERS Safety Report 4761020-0 (Version None)
Quarter: 2005Q3

REPORT INFORMATION
  Report Type: 
  Country: None (occurrence: None)
  Receive Date: 20050901
  Receipt Date: 20050818
  Transmission Date: 20060218
  Serious: Yes (Other)
  Sender: FDA-Public Use
  Company Number: SUS1-2005-00652

PATIENT
  Age: 86 Year
  Sex: Female

DRUGS (9)
  1. AGRYLIN [Suspect]
     Indication: THROMBOCYTHAEMIA
     Dosage: 0.5 MG, 4X/DAY; QID, ORAL
     Route: 048
     Dates: start: 20050812
  2. ASPIRIN [Concomitant]
  3. EFFEXOR XR [Concomitant]
  4. PLAVIX [Concomitant]
  5. LOPRESSOR [Concomitant]
  6. SYNTHROID [Concomitant]
  7. IBUPROFEN [Concomitant]
  8. PROTONIX [Concomitant]
  9. DITROPAN [Concomitant]

REACTIONS (6)
  - AMNESIA [None]
  - CONTUSION [None]
  - LEUKAEMIA [None]
  - OEDEMA PERIPHERAL [None]
  - PLATELET COUNT INCREASED [None]
  - TRANSIENT ISCHAEMIC ATTACK [None]
